APPROVED DRUG PRODUCT: ZARONTIN
Active Ingredient: ETHOSUXIMIDE
Strength: 250MG
Dosage Form/Route: CAPSULE;ORAL
Application: N012380 | Product #001 | TE Code: AB
Applicant: PARKE DAVIS DIV WARNER LAMBERT CO
Approved: Approved Prior to Jan 1, 1982 | RLD: Yes | RS: Yes | Type: RX